APPROVED DRUG PRODUCT: CHILDREN'S MOTRIN
Active Ingredient: IBUPROFEN
Strength: 100MG/5ML
Dosage Form/Route: SUSPENSION;ORAL
Application: N020516 | Product #001
Applicant: KENVUE BRANDS LLC
Approved: Jun 16, 1995 | RLD: Yes | RS: Yes | Type: OTC